FAERS Safety Report 24789725 (Version 1)
Quarter: 2024Q4

REPORT INFORMATION
  Report Type: Spontaneous
  Country: US (occurrence: None)
  Receive Date: 20241229
  Receipt Date: 20241229
  Transmission Date: 20250115
  Serious: Yes (Life-Threatening, Other)
  Sender: Public
  Company Number: None

PATIENT
  Age: 47 Year
  Sex: Female
  Weight: 92.25 kg

DRUGS (8)
  1. SKYRIZI [Suspect]
     Active Substance: RISANKIZUMAB-RZAA
     Indication: Crohn^s disease
     Dates: start: 20241118
  2. Pepcid Portable [Concomitant]
  3. DEPAKOTE [Concomitant]
     Active Substance: DIVALPROEX SODIUM
  4. Amilopine [Concomitant]
  5. B12 INJECTION [Concomitant]
  6. FOLIC ACID [Concomitant]
     Active Substance: FOLIC ACID
  7. VITAMINS [Concomitant]
     Active Substance: VITAMINS
  8. FIBER THERAPY (CALCIUM POLYCARBOPHIL) [Concomitant]
     Active Substance: CALCIUM POLYCARBOPHIL

REACTIONS (6)
  - Throat tightness [None]
  - Arthralgia [None]
  - Hyperhidrosis [None]
  - Vomiting [None]
  - Dyspnoea [None]
  - Dysphonia [None]

NARRATIVE: CASE EVENT DATE: 20241226
